FAERS Safety Report 8481861-6 (Version None)
Quarter: 2012Q2

REPORT INFORMATION
  Report Type: 
  Country: None (occurrence: None)
  Receive Date: 20120626
  Receipt Date: 20120626
  Transmission Date: 20120825
  Serious: No
  Sender: FDA-Public Use
  Company Number: None

PATIENT
  Sex: Female
  Weight: 61.2356 kg

DRUGS (1)
  1. CARBIDOPA + LEVODOPA [Suspect]
     Indication: PERIODIC LIMB MOVEMENT DISORDER
     Dosage: UP TO 3 TIMES A DAY 1 OTIC
     Route: 001
     Dates: start: 20000902, end: 20120627

REACTIONS (3)
  - PATHOLOGICAL GAMBLING [None]
  - MEMORY IMPAIRMENT [None]
  - MUSCLE TWITCHING [None]
